FAERS Safety Report 25751646 (Version 1)
Quarter: 2025Q3

REPORT INFORMATION
  Report Type: Spontaneous
  Country: BR (occurrence: BR)
  Receive Date: 20250902
  Receipt Date: 20250902
  Transmission Date: 20251021
  Serious: Yes (Other)
  Sender: NOVO NORDISK
  Company Number: BR-NOVOPROD-1506408

PATIENT
  Sex: Male

DRUGS (3)
  1. WEGOVY [Suspect]
     Active Substance: SEMAGLUTIDE
     Indication: Product used for unknown indication
     Dates: start: 202411
  2. WEGOVY [Suspect]
     Active Substance: SEMAGLUTIDE
     Dates: end: 202501
  3. WEGOVY [Suspect]
     Active Substance: SEMAGLUTIDE
     Dates: start: 202412

REACTIONS (3)
  - Hepatic cirrhosis [Not Recovered/Not Resolved]
  - Haemorrhage [Unknown]
  - Device use issue [Unknown]

NARRATIVE: CASE EVENT DATE: 20250101
